FAERS Safety Report 10336449 (Version 3)
Quarter: 2018Q4

REPORT INFORMATION
  Report Type: Spontaneous
  Country: US (occurrence: US)
  Receive Date: 20140723
  Receipt Date: 20181008
  Transmission Date: 20190204
  Serious: No
  Sender: FDA-Public Use
  Company Number: US-BRISTOL-MYERS SQUIBB COMPANY-20653309

PATIENT
  Sex: Female
  Weight: 95.24 kg

DRUGS (2)
  1. COUMADIN [Suspect]
     Active Substance: WARFARIN SODIUM
     Indication: CEREBROVASCULAR ACCIDENT
     Dosage: 5 MG, QD, AT BEDTIME
     Route: 048
     Dates: start: 1980
  2. COUMADIN [Suspect]
     Active Substance: WARFARIN SODIUM
     Indication: PRODUCT USED FOR UNKNOWN INDICATION
     Dosage: 1.5 MG, QD, ON FRIDAY BEDTIME
     Route: 048

REACTIONS (5)
  - Seasonal allergy [Unknown]
  - Suspected counterfeit product [Unknown]
  - Expired product administered [Unknown]
  - International normalised ratio fluctuation [Unknown]
  - Prothrombin time prolonged [Unknown]
